FAERS Safety Report 19024424 (Version 1)
Quarter: 2021Q1

REPORT INFORMATION
  Report Type: Spontaneous
  Country: US (occurrence: US)
  Receive Date: 20210317
  Receipt Date: 20210317
  Transmission Date: 20210420
  Serious: Yes (Other)
  Sender: FDA-Public Use
  Company Number: US-ORGANON-1803USA007820

PATIENT
  Sex: Male

DRUGS (8)
  1. CARVEDILOL. [Concomitant]
     Active Substance: CARVEDILOL
     Dosage: UNK
  2. AREDS [Concomitant]
     Active Substance: MINERALS\VITAMINS
     Dosage: UNK
  3. XANAX [Concomitant]
     Active Substance: ALPRAZOLAM
     Dosage: UNK
  4. MAGNESIUM [Concomitant]
     Active Substance: MAGNESIUM
     Dosage: UNK
  5. PROPECIA [Suspect]
     Active Substance: FINASTERIDE
     Indication: HAIR GROWTH ABNORMAL
     Dosage: 1 MG ONCE A DAY
     Route: 048
     Dates: start: 2011
  6. ROZEREM [Concomitant]
     Active Substance: RAMELTEON
     Dosage: UNK
  7. VITAMIN D [VITAMIN D NOS] [Concomitant]
     Active Substance: VITAMIN D NOS
     Dosage: UNK
  8. TURMERIC CURCUMIN [CURCUMA LONGA] [Concomitant]
     Dosage: UNK

REACTIONS (8)
  - Constipation [Recovered/Resolved]
  - Hair transplant [Unknown]
  - Therapeutic product effect decreased [Unknown]
  - Product storage error [Unknown]
  - Stress [Recovered/Resolved]
  - Alopecia [Not Recovered/Not Resolved]
  - Expired product administered [Unknown]
  - Tongue neoplasm malignant stage unspecified [Recovered/Resolved]

NARRATIVE: CASE EVENT DATE: 2014
